FAERS Safety Report 10618456 (Version 2)
Quarter: 2014Q4

REPORT INFORMATION
  Report Type: Spontaneous
  Country: US (occurrence: US)
  Receive Date: 20141202
  Receipt Date: 20141202
  Transmission Date: 20150529
  Serious: No
  Sender: FDA-Public Use
  Company Number: US-TEVA-465471USA

PATIENT

DRUGS (1)
  1. AZITHROMYCIN [Suspect]
     Active Substance: AZITHROMYCIN ANHYDROUS
     Dosage: 200MG/5ML

REACTIONS (4)
  - Vomiting [Recovered/Resolved]
  - Product taste abnormal [Recovered/Resolved]
  - Nausea [Recovered/Resolved]
  - Product odour abnormal [Recovered/Resolved]
